FAERS Safety Report 24999729 (Version 2)
Quarter: 2025Q2

REPORT INFORMATION
  Report Type: Spontaneous
  Country: US (occurrence: US)
  Receive Date: 20250222
  Receipt Date: 20250619
  Transmission Date: 20250717
  Serious: No
  Sender: SANOFI AVENTIS
  Company Number: US-SA-2025SA047259

PATIENT
  Age: 71 Year
  Sex: Male

DRUGS (20)
  1. DUPIXENT [Suspect]
     Active Substance: DUPILUMAB
     Indication: Chronic obstructive pulmonary disease
     Dosage: 300 MG, QOW
     Route: 058
     Dates: start: 202501
  2. DUPIXENT [Suspect]
     Active Substance: DUPILUMAB
     Indication: Lower respiratory tract infection
  3. DUPIXENT [Suspect]
     Active Substance: DUPILUMAB
     Indication: Chronic obstructive pulmonary disease
     Dosage: 300 MG, QOW
     Route: 058
  4. DUPIXENT [Suspect]
     Active Substance: DUPILUMAB
     Indication: Lower respiratory tract infection
  5. IPRATROPIUM [Concomitant]
     Active Substance: IPRATROPIUM
  6. LORATADINE [Concomitant]
     Active Substance: LORATADINE
  7. ELIQUIS [Concomitant]
     Active Substance: APIXABAN
  8. ENTRESTO [Concomitant]
     Active Substance: SACUBITRIL\VALSARTAN
  9. OMEPRAZOLE [Concomitant]
     Active Substance: OMEPRAZOLE
  10. DIGOXIN [Concomitant]
     Active Substance: DIGOXIN
  11. BREZTRI [Concomitant]
     Active Substance: BUDESONIDE\FORMOTEROL\GLYCOPYRROLATE
  12. METOPROLOL [Concomitant]
     Active Substance: METOPROLOL
  13. SPIRONOLACTONE [Concomitant]
     Active Substance: SPIRONOLACTONE
  14. LEVOTHYROXINE [Concomitant]
     Active Substance: LEVOTHYROXINE
  15. PREDNISONE [Concomitant]
     Active Substance: PREDNISONE
  16. LOSARTAN POTASSIUM [Concomitant]
     Active Substance: LOSARTAN POTASSIUM
  17. TAMSULOSIN [Concomitant]
     Active Substance: TAMSULOSIN
  18. ATORVASTATIN [Concomitant]
     Active Substance: ATORVASTATIN
  19. ALBUTEROL SULFATE [Concomitant]
     Active Substance: ALBUTEROL SULFATE
  20. THEOPHYLLINE [Concomitant]
     Active Substance: THEOPHYLLINE

REACTIONS (6)
  - Diarrhoea [Recovered/Resolved]
  - Headache [Not Recovered/Not Resolved]
  - Vision blurred [Not Recovered/Not Resolved]
  - Eye pruritus [Not Recovered/Not Resolved]
  - Dry eye [Not Recovered/Not Resolved]
  - Product use in unapproved indication [Unknown]

NARRATIVE: CASE EVENT DATE: 20250101
